FAERS Safety Report 9882795 (Version 1)
Quarter: 2014Q1

REPORT INFORMATION
  Report Type: Spontaneous
  Country: US (occurrence: US)
  Receive Date: 20140207
  Receipt Date: 20140207
  Transmission Date: 20141002
  Serious: Yes (Other)
  Sender: FDA-Public Use
  Company Number: US-FRI-1000053994

PATIENT
  Sex: Male

DRUGS (1)
  1. DALIRESP [Suspect]
     Indication: BRONCHITIS CHRONIC

REACTIONS (1)
  - Psychotic disorder [Unknown]
